FAERS Safety Report 17752542 (Version 1)
Quarter: 2020Q2

REPORT INFORMATION
  Report Type: Spontaneous
  Country: SI (occurrence: SI)
  Receive Date: 20200506
  Receipt Date: 20200506
  Transmission Date: 20200714
  Serious: Yes (Other)
  Sender: FDA-Public Use
  Company Number: SI-BAYER-2020-072342

PATIENT
  Age: 71 Year
  Sex: Female

DRUGS (7)
  1. CHLOROQUINE. [Suspect]
     Active Substance: CHLOROQUINE
     Indication: CORONAVIRUS INFECTION
     Dosage: 250 MG COATED TABLETS; 500MG AT 12-HOUR INTERVALS
     Route: 048
     Dates: start: 20200326, end: 20200402
  2. PANTOPRAZOL [PANTOPRAZOLE] [Concomitant]
     Active Substance: PANTOPRAZOLE
  3. FLUCLOXACILLINE [FLUCLOXACILLIN] [Concomitant]
  4. FENTANYL. [Concomitant]
     Active Substance: FENTANYL
  5. MIDAZOLAM. [Concomitant]
     Active Substance: MIDAZOLAM
  6. DEXMEDETOMIDINE. [Concomitant]
     Active Substance: DEXMEDETOMIDINE
  7. ESMERON [Concomitant]
     Active Substance: ROCURONIUM BROMIDE

REACTIONS (2)
  - Electrocardiogram QT prolonged [Recovered/Resolved]
  - Atrioventricular block first degree [Recovered/Resolved]

NARRATIVE: CASE EVENT DATE: 20200402
